FAERS Safety Report 8081217-4 (Version None)
Quarter: 2012Q1

REPORT INFORMATION
  Report Type: 
  Country: None (occurrence: None)
  Receive Date: 20120130
  Receipt Date: 20120124
  Transmission Date: 20120608
  Serious: No
  Sender: FDA-Public Use
  Company Number: US-PFIZER INC-2011300571

PATIENT
  Sex: Male
  Weight: 90.7 kg

DRUGS (10)
  1. LISINOPRIL [Concomitant]
     Dosage: 5 MG, DAILY
     Route: 048
  2. ACETYLSALICYLIC ACID [Concomitant]
     Dosage: UNK
  3. VYTORIN [Concomitant]
     Indication: BLOOD CHOLESTEROL ABNORMAL
     Dosage: UNK
  4. TRIAMTERENE [Concomitant]
     Dosage: UNK
  5. SIMVASTATIN [Concomitant]
     Dosage: 20 MG, 1 TABLET QHS,
     Route: 048
  6. MULTI-VITAMINS [Concomitant]
     Dosage: UNK
  7. LIPITOR [Concomitant]
     Dosage: 10 MG, 1X/DAY
     Route: 048
  8. NIFEDIPINE [Suspect]
     Indication: HYPERTENSION
     Dosage: 30 MG, UNK
     Route: 048
     Dates: start: 20110101, end: 20110101
  9. METFORMIN [Concomitant]
     Indication: DIABETES MELLITUS
     Dosage: 500 MG, 3X/DAY
     Route: 048
  10. TRIAMTERENE AND HYDROCHLOROTHIAZIDE [Concomitant]
     Dosage: 1 DF, 1X/DAY (37.5 MG-25 MG CAP)
     Route: 048

REACTIONS (6)
  - HYPERHIDROSIS [None]
  - ANXIETY [None]
  - DYSGEUSIA [None]
  - CHEST PAIN [None]
  - FLUSHING [None]
  - PRODUCT SUBSTITUTION ISSUE [None]
